FAERS Safety Report 19790023 (Version 3)
Quarter: 2022Q1

REPORT INFORMATION
  Report Type: Report from Study
  Country: MX (occurrence: MX)
  Receive Date: 20210904
  Receipt Date: 20220206
  Transmission Date: 20220424
  Serious: Yes (Hospitalization, Other)
  Sender: FDA-Public Use
  Company Number: MX-NOVARTISPH-NVSC2021MX201150

PATIENT
  Age: 62 Year
  Sex: Female

DRUGS (3)
  1. TASIGNA [Suspect]
     Active Substance: NILOTINIB
     Indication: Chronic myeloid leukaemia
     Dosage: 400 MG, Q12H
     Route: 048
     Dates: start: 20190809
  2. TASIGNA [Suspect]
     Active Substance: NILOTINIB
     Dosage: 600 MG, Q24H
     Route: 048
  3. TASIGNA [Suspect]
     Active Substance: NILOTINIB
     Dosage: 600 MG (3 TABLETS)
     Route: 048

REACTIONS (11)
  - COVID-19 [Not Recovered/Not Resolved]
  - Oesophagitis [Not Recovered/Not Resolved]
  - Hepatic pain [Unknown]
  - Hepatic enzyme increased [Unknown]
  - Hepatotoxicity [Not Recovered/Not Resolved]
  - Liver injury [Unknown]
  - Headache [Unknown]
  - Oropharyngeal pain [Unknown]
  - Pyrexia [Unknown]
  - Chills [Unknown]
  - Inappropriate schedule of product administration [Unknown]

NARRATIVE: CASE EVENT DATE: 20210806
